FAERS Safety Report 8420240-4 (Version None)
Quarter: 2012Q2

REPORT INFORMATION
  Report Type: 
  Country: None (occurrence: None)
  Receive Date: 20120607
  Receipt Date: 20120604
  Transmission Date: 20120825
  Serious: Yes (Other)
  Sender: FDA-Public Use
  Company Number: US-PFIZER INC-2011262876

PATIENT
  Sex: Male
  Weight: 101.59 kg

DRUGS (6)
  1. SPIRONOLACTONE [Concomitant]
     Dosage: UNK
  2. NEXIUM [Concomitant]
     Dosage: UNK
  3. NEURONTIN [Concomitant]
     Dosage: UNK
  4. LISINOPRIL [Concomitant]
     Dosage: UNK
  5. ACETAMINOPHEN [Concomitant]
     Dosage: UNK
  6. LYRICA [Suspect]
     Indication: PAIN
     Dosage: 300 MG, 2X/DAY
     Route: 048
     Dates: end: 20120201

REACTIONS (2)
  - HYPOACUSIS [None]
  - PAIN [None]
